FAERS Safety Report 9645333 (Version 1)
Quarter: 2013Q4

REPORT INFORMATION
  Report Type: Spontaneous
  Country: US (occurrence: None)
  Receive Date: 20131023
  Receipt Date: 20131023
  Transmission Date: 20140711
  Serious: No
  Sender: FDA-Public Use
  Company Number: None

PATIENT
  Age: 38 Year
  Sex: Female
  Weight: 92.99 kg

DRUGS (1)
  1. MIRVASO [Suspect]
     Indication: ROSACEA
     Dosage: .33% TEASPOON ONCE DAILY (AM) ON THE SKIN (FACE)
     Dates: start: 20130920, end: 20130925

REACTIONS (3)
  - Rosacea [None]
  - Condition aggravated [None]
  - Feeling hot [None]
